FAERS Safety Report 10383180 (Version 4)
Quarter: 2014Q4

REPORT INFORMATION
  Report Type: Spontaneous
  Country: JP (occurrence: JP)
  Receive Date: 20140813
  Receipt Date: 20141217
  Transmission Date: 20150528
  Serious: Yes (Hospitalization)
  Sender: FDA-Public Use
  Company Number: PHHY2014JP098735

PATIENT
  Age: 82 Year
  Sex: Female

DRUGS (7)
  1. FULVESTRANT [Concomitant]
     Active Substance: FULVESTRANT
     Indication: PRODUCT USED FOR UNKNOWN INDICATION
     Route: 065
  2. HOKUNALIN [Concomitant]
     Active Substance: TULOBUTEROL
     Indication: COUGH
     Dosage: 2 MG
     Route: 062
     Dates: start: 20130305
  3. DENOTAS [Concomitant]
     Active Substance: CALCIUM CARBONATE\CHOLECALCIFEROL\MAGNESIUM CARBONATE
     Indication: PROPHYLAXIS
     Dosage: 2 DF
     Route: 048
     Dates: start: 20140204
  4. AROMASIN [Concomitant]
     Active Substance: EXEMESTANE
     Indication: BREAST CANCER RECURRENT
     Dosage: 1 DF
     Route: 048
     Dates: start: 20140603, end: 20140701
  5. AFINITOR [Suspect]
     Active Substance: EVEROLIMUS
     Indication: BREAST CANCER RECURRENT
     Dosage: 10 MG, QD
     Route: 048
     Dates: start: 20140603, end: 20140701
  6. RIVASTACH [Concomitant]
     Active Substance: RIVASTIGMINE
     Indication: DEMENTIA
     Dosage: 18 MG
     Route: 062
     Dates: start: 20140204
  7. RANMARK [Concomitant]
     Active Substance: DENOSUMAB
     Indication: METASTASES TO BONE
     Dosage: 1 DF, UNK
     Route: 062
     Dates: start: 20140204

REACTIONS (14)
  - Decreased appetite [Unknown]
  - Diabetic hyperglycaemic coma [Unknown]
  - Electrolyte imbalance [Recovered/Resolved]
  - Blood triglycerides increased [Recovered/Resolved]
  - Aspartate aminotransferase increased [Recovered/Resolved]
  - Dry mouth [Unknown]
  - Fatigue [Unknown]
  - Movement disorder [Unknown]
  - Hyperglycaemia [Recovered/Resolved]
  - Pyrexia [Unknown]
  - Neutrophil count decreased [Unknown]
  - Tachycardia [Unknown]
  - Asthenia [Unknown]
  - Red blood cell count increased [Recovered/Resolved]

NARRATIVE: CASE EVENT DATE: 20140617
